FAERS Safety Report 8242650-0 (Version None)
Quarter: 2012Q1

REPORT INFORMATION
  Report Type: 
  Country: None (occurrence: None)
  Receive Date: 20120329
  Receipt Date: 20120327
  Transmission Date: 20120608
  Serious: Yes (Hospitalization, Other)
  Sender: FDA-Public Use
  Company Number: PHHY2011NL89075

PATIENT
  Sex: Male

DRUGS (10)
  1. DICLOFENAC SODIUM [Concomitant]
  2. ZOMETA [Suspect]
     Dosage: 4 MG/ 5 ML
     Route: 042
     Dates: start: 20110916
  3. ZOMETA [Suspect]
     Dosage: 4 MG/ 5 ML
     Route: 042
     Dates: start: 20111010
  4. ZOMETA [Suspect]
     Dosage: 4 MG/ 5 ML
     Route: 042
     Dates: start: 20120229
  5. PANTOPRAZOLE [Concomitant]
  6. CHEMOTHERAPEUTICS [Concomitant]
  7. ZOMETA [Suspect]
     Indication: PROSTATE CANCER METASTATIC
     Dosage: 4 MG/ 5 ML
     Route: 042
     Dates: start: 20100518
  8. PREDNISOLONE [Concomitant]
  9. OXYCODONE HCL [Concomitant]
  10. LIPITOR [Concomitant]

REACTIONS (3)
  - GENERAL PHYSICAL HEALTH DETERIORATION [None]
  - BONE PAIN [None]
  - BACK PAIN [None]
